FAERS Safety Report 8289009-8 (Version None)
Quarter: 2012Q2

REPORT INFORMATION
  Report Type: 
  Country: None (occurrence: None)
  Receive Date: 20120417
  Receipt Date: 20120416
  Transmission Date: 20120825
  Serious: Yes (Other)
  Sender: FDA-Public Use
  Company Number: TW-B.I. PHARMACEUTICALS,INC./RIDGEFIELD-2012-EU-01725GL

PATIENT
  Age: 52 Year
  Sex: Female

DRUGS (6)
  1. TELMISARTAN [Suspect]
     Indication: CARDIOVASCULAR DISORDER
  2. HALOPERIDOL [Concomitant]
  3. LITHIUM CARBONATE [Suspect]
     Indication: SCHIZOAFFECTIVE DISORDER
     Dosage: 900 MG
     Dates: start: 20080201
  4. TELMISARTAN [Suspect]
     Indication: HYPERTENSION
     Dosage: 40 MG
     Dates: start: 20080201
  5. BISOPROLOL FUMARATE [Suspect]
     Indication: HYPERTENSION
     Dates: start: 20080201
  6. BISOPROLOL FUMARATE [Suspect]
     Indication: CARDIOVASCULAR DISORDER

REACTIONS (7)
  - ALTERED STATE OF CONSCIOUSNESS [None]
  - TOXICITY TO VARIOUS AGENTS [None]
  - VOMITING [None]
  - NAUSEA [None]
  - DIARRHOEA [None]
  - HYPERKALAEMIA [None]
  - RENAL FAILURE ACUTE [None]
